FAERS Safety Report 23887237 (Version 1)
Quarter: 2024Q2

REPORT INFORMATION
  Report Type: Spontaneous
  Country: CA (occurrence: CA)
  Receive Date: 20240523
  Receipt Date: 20240523
  Transmission Date: 20240716
  Serious: Yes (Other)
  Sender: FDA-Public Use
  Company Number: CA-AUROBINDO-AUR-APL-2024-023874

PATIENT
  Age: 42 Year
  Sex: Female

DRUGS (10)
  1. HYDROCORTISONE [Suspect]
     Active Substance: HYDROCORTISONE
     Indication: Dermatitis atopic
     Dosage: UNK
     Route: 061
  2. HYDROCORTISONE VALERATE [Suspect]
     Active Substance: HYDROCORTISONE VALERATE
     Indication: Dermatitis atopic
     Dosage: UNK
     Route: 061
  3. FLUTICASONE FUROATE [Suspect]
     Active Substance: FLUTICASONE FUROATE
     Indication: Dermatitis atopic
     Dosage: UNK
  4. DEXAMETHASONE [Suspect]
     Active Substance: DEXAMETHASONE
     Indication: Dermatitis atopic
     Dosage: UNK
     Route: 065
  5. DESONIDE [Suspect]
     Active Substance: DESONIDE
     Indication: Dermatitis atopic
     Dosage: UNK UNK, ONCE A DAY
     Route: 061
  6. BETAMETHASONE VALERATE [Suspect]
     Active Substance: BETAMETHASONE VALERATE
     Indication: Dermatitis atopic
     Dosage: UNK
     Route: 061
  7. BETAMETHASONE DIPROPIONATE [Suspect]
     Active Substance: BETAMETHASONE DIPROPIONATE
     Indication: Product used for unknown indication
     Dosage: UNK, ONCE A DAY
     Route: 061
  8. DEXAMETHASONE [Concomitant]
     Active Substance: DEXAMETHASONE
     Indication: Product used for unknown indication
     Dosage: UNK
     Route: 047
  9. FLUTICASONE [Concomitant]
     Active Substance: FLUTICASONE
     Indication: Rhinitis allergic
     Dosage: UNK
     Route: 065
  10. FLUTICASONE [Concomitant]
     Active Substance: FLUTICASONE
     Indication: Asthma

REACTIONS (23)
  - Alopecia [Recovered/Resolved]
  - Angioedema [Recovered/Resolved]
  - Anhidrosis [Recovered/Resolved]
  - Condition aggravated [Recovered/Resolved]
  - Dermatitis atopic [Recovered/Resolved]
  - Emotional distress [Recovered/Resolved]
  - Erythema [Recovered/Resolved]
  - Fatigue [Recovered/Resolved]
  - Incorrect dose administered [Recovered/Resolved]
  - Incorrect product administration duration [Recovered/Resolved]
  - Madarosis [Recovered/Resolved]
  - Neuralgia [Recovered/Resolved]
  - Oedema [Recovered/Resolved]
  - Pain [Recovered/Resolved]
  - Paraesthesia [Recovered/Resolved]
  - Skin burning sensation [Recovered/Resolved]
  - Skin exfoliation [Recovered/Resolved]
  - Swelling [Recovered/Resolved]
  - Topical steroid withdrawal reaction [Recovered/Resolved]
  - Drug ineffective [Recovered/Resolved]
  - Pain of skin [Recovered/Resolved]
  - Skin swelling [Recovered/Resolved]
  - Skin oedema [Recovered/Resolved]
